FAERS Safety Report 23463671 (Version 2)
Quarter: 2024Q1

REPORT INFORMATION
  Report Type: Spontaneous
  Country: US (occurrence: US)
  Receive Date: 20240131
  Receipt Date: 20240221
  Transmission Date: 20240409
  Serious: Yes (Hospitalization)
  Sender: FDA-Public Use
  Company Number: US-MALLINCKRODT-MNK202400158

PATIENT
  Age: 2 Year
  Sex: Female
  Weight: 13 kg

DRUGS (6)
  1. UVADEX [Suspect]
     Active Substance: METHOXSALEN
     Indication: Graft versus host disease
     Route: 050
     Dates: start: 20231003, end: 202401
  2. HEPARIN [Concomitant]
     Active Substance: HEPARIN SODIUM
     Indication: Anticoagulant therapy
     Dosage: 2,200IU/500MLS, A/C RATIO: 8:1
  3. ENALAPRILAT [Concomitant]
     Active Substance: ENALAPRILAT
     Dosage: UNKNOWN
     Route: 042
     Dates: start: 20230815, end: 20230820
  4. ENALAPRILAT [Concomitant]
     Active Substance: ENALAPRILAT
     Route: 048
     Dates: start: 20230821
  5. AMLODIPINE [Concomitant]
     Active Substance: AMLODIPINE BESYLATE
     Route: 048
  6. METOPROLOL [Concomitant]
     Active Substance: METOPROLOL
     Route: 048

REACTIONS (3)
  - Pneumoperitoneum [Recovered/Resolved]
  - Pneumatosis [Recovered/Resolved]
  - Hypotension [Recovered/Resolved]

NARRATIVE: CASE EVENT DATE: 20240104
